FAERS Safety Report 10234919 (Version 1)
Quarter: 2014Q2

REPORT INFORMATION
  Report Type: Spontaneous
  Country: US (occurrence: None)
  Receive Date: 20140520
  Receipt Date: 20140520
  Transmission Date: 20141212
  Serious: Yes (Other)
  Sender: FDA-Public Use
  Company Number: 2013PL000113

PATIENT
  Age: 53 Year
  Sex: Female

DRUGS (16)
  1. AZATHIOPRINE (AZATHIOPRINE) [Suspect]
     Indication: PRODUCT USED FOR UNKNOWN INDICATION
  2. HUMIRA [Suspect]
     Indication: CROHN^S DISEASE
     Route: 058
     Dates: start: 20121121, end: 20121121
  3. PAXIL [Concomitant]
  4. MULTIVITAMINS (ERGOCALCIFEROL,RETINOL,NICOTINAMIDE,ASCORBIC ACID,FOLIC ACID,RIBOFLAVIN,PANTHENOL, THIAMINE HYDROCHLORIDE) [Concomitant]
  5. ZYRTEC (CETIRIZINE HYDROCHLORIDE) [Concomitant]
  6. VITAMIN B (VITAMIN B COMPLEX) [Concomitant]
  7. PRILOSEC (OMEPRAZOLE) [Concomitant]
  8. NASAL (OXYMETAZOLINE HYDROCHLORIDE) [Concomitant]
  9. FISH OIL (FISH OIL) [Concomitant]
  10. VITAMIN B 12 (VITAMIN B NOS) [Concomitant]
  11. VITAMIN D3 (COLECALCIFEROL) [Concomitant]
  12. CALCIUM + VITAMIN D (CALCIUM CARBONATE,COLECALCIFEROL) [Concomitant]
  13. IRON (IRON) [Concomitant]
  14. GINKGO BILOBA (GINKGO BILOBA) [Concomitant]
  15. KLOR-CON (POTASSIUM CHLORIDE) [Concomitant]
  16. NORVASC (AMLODIPINE BESILATE) [Concomitant]

REACTIONS (7)
  - Joint swelling [None]
  - Arthralgia [None]
  - Injection site pruritus [None]
  - Drug ineffective [None]
  - Diarrhoea [None]
  - Abdominal distension [None]
  - Malignant melanoma [None]
